FAERS Safety Report 22540652 (Version 1)
Quarter: 2023Q2

REPORT INFORMATION
  Report Type: Report from Study
  Country: DE (occurrence: DE)
  Receive Date: 20230609
  Receipt Date: 20230609
  Transmission Date: 20230722
  Serious: Yes (Hospitalization)
  Sender: FDA-Public Use
  Company Number: DE-GENMAB-2023-00155

PATIENT
  Age: 73 Year
  Sex: Male
  Weight: 131 kg

DRUGS (34)
  1. EPCORITAMAB [Suspect]
     Active Substance: EPCORITAMAB
     Indication: Diffuse large B-cell lymphoma stage IV
     Dosage: PRIMING DOSE: 0.16 MILLIGRAM, SINGLE
     Route: 058
     Dates: start: 20230119, end: 20230119
  2. EPCORITAMAB [Suspect]
     Active Substance: EPCORITAMAB
     Dosage: INTERMEDIATE DOSE: 0.8 MILLIGRAM, SINGLE
     Route: 058
     Dates: start: 20230126, end: 20230126
  3. EPCORITAMAB [Suspect]
     Active Substance: EPCORITAMAB
     Dosage: FULL DOSE: 48 MILLIGRAM, WEEKLY
     Route: 058
     Dates: start: 20230202
  4. DIMETHINDENE [Concomitant]
     Active Substance: DIMETHINDENE
     Indication: Premedication
     Dosage: 4 MILLIGRAM, SINGLE
     Route: 042
     Dates: start: 20230119, end: 20230119
  5. DIMETHINDENE [Concomitant]
     Active Substance: DIMETHINDENE
     Dosage: 4 MILLIGRAM, SINGLE
     Route: 042
     Dates: start: 20230126, end: 20230126
  6. DIMETHINDENE [Concomitant]
     Active Substance: DIMETHINDENE
     Dosage: 4 MILLIGRAM, SINGLE
     Route: 042
     Dates: start: 20230202, end: 20230202
  7. ACETAMINOPHEN [Concomitant]
     Active Substance: ACETAMINOPHEN
     Indication: Premedication
     Dosage: 1000 MILLIGRAM, SINGLE
     Route: 048
     Dates: start: 20230119, end: 20230119
  8. ACETAMINOPHEN [Concomitant]
     Active Substance: ACETAMINOPHEN
     Dosage: 1000 MILLIGRAM, SINGLE
     Route: 048
     Dates: start: 20230126, end: 20230126
  9. ACETAMINOPHEN [Concomitant]
     Active Substance: ACETAMINOPHEN
     Dosage: 1000 MILLIGRAM, SINGLE
     Route: 048
     Dates: start: 20230202, end: 20230202
  10. PREDNISOLONE [Concomitant]
     Active Substance: PREDNISOLONE
     Indication: Prophylaxis
     Dosage: 100 MILLIGRAM, SINGLE
     Route: 042
     Dates: start: 20230119, end: 20230119
  11. PREDNISOLONE [Concomitant]
     Active Substance: PREDNISOLONE
     Dosage: 100 MILLIGRAM, QD
     Route: 048
     Dates: start: 20230120, end: 20230122
  12. PREDNISOLONE [Concomitant]
     Active Substance: PREDNISOLONE
     Dosage: 100 MILLIGRAM, SINGLE
     Route: 042
     Dates: start: 20230202, end: 20230202
  13. PREDNISOLUT [PREDNISOLONE HEMISUCCINATE] [Concomitant]
     Indication: Prophylaxis
     Dosage: 100 MILLIGRAM, SINGLE
     Route: 042
     Dates: start: 20230126, end: 20230126
  14. PREDNISOLUT [PREDNISOLONE HEMISUCCINATE] [Concomitant]
     Dosage: 100 MILLIGRAM, QD
     Route: 048
     Dates: start: 20230127, end: 20230129
  15. ALLOPURINOL [Concomitant]
     Active Substance: ALLOPURINOL
     Indication: Prophylaxis
     Dosage: 150 MILLIGRAM, QD
     Route: 048
     Dates: start: 2013, end: 20230116
  16. ALLOPURINOL [Concomitant]
     Active Substance: ALLOPURINOL
     Dosage: 300 MILLIGRAM, QD
     Route: 048
     Dates: start: 20230117, end: 20230327
  17. DEXAMETHASONE [Concomitant]
     Active Substance: DEXAMETHASONE
     Indication: Cytokine release syndrome
     Dosage: 10 MILLIGRAM, QD
     Route: 042
     Dates: start: 20230120, end: 20230123
  18. DEXAMETHASONE [Concomitant]
     Active Substance: DEXAMETHASONE
     Indication: Immune effector cell-associated neurotoxicity syndrome
     Dosage: 5 MILLIGRAM, TID
     Route: 042
     Dates: start: 20230205, end: 20230205
  19. DEXPANTHENOL [Concomitant]
     Active Substance: DEXPANTHENOL
     Indication: Oral herpes
     Dosage: 50/1 50MG/1G, PRN
     Route: 061
     Dates: start: 20230128, end: 20230201
  20. DIMENHYDRINAT HAMELN [Concomitant]
     Indication: Cytokine release syndrome
     Dosage: 62 MILLIGRAM, PRN
     Route: 042
     Dates: start: 20230120, end: 20230120
  21. ELIQUIS [Concomitant]
     Active Substance: APIXABAN
     Dosage: 5 MILLIGRAM, BID
     Route: 048
     Dates: start: 2022, end: 20230208
  22. MAGNESIUM OXIDE [Concomitant]
     Active Substance: MAGNESIUM OXIDE
     Indication: Muscle spasms
     Dosage: 150 MILLIGRAM, PRN
     Route: 048
     Dates: start: 20230126, end: 20230201
  23. PANTOPRAZOLE [Concomitant]
     Active Substance: PANTOPRAZOLE
     Indication: Prophylaxis
     Dosage: 20 MILLIGRAM, BID
     Route: 048
     Dates: start: 20230118
  24. ACETAMINOPHEN [Concomitant]
     Active Substance: ACETAMINOPHEN
     Indication: Cytokine release syndrome
     Dosage: 1000 MILLIGRAM, PRN
     Route: 048
     Dates: start: 20230120, end: 20230120
  25. MEPERIDINE [Concomitant]
     Active Substance: MEPERIDINE
     Indication: Cytokine release syndrome
     Dosage: 50 MILLIGRAM, PRN
     Route: 042
     Dates: start: 20230120, end: 20230120
  26. VALACYCLOVIR HYDROCHLORIDE [Concomitant]
     Active Substance: VALACYCLOVIR HYDROCHLORIDE
     Indication: Oral herpes
     Dosage: 500 MILLIGRAM, BID
     Route: 048
     Dates: start: 20230128, end: 20230202
  27. CEFPODOXIME [Concomitant]
     Active Substance: CEFPODOXIME
     Indication: Urinary tract infection
     Dosage: 400 MILLIGRAM, BID
     Route: 048
     Dates: start: 20230202, end: 20230202
  28. CEFPODOXIME [Concomitant]
     Active Substance: CEFPODOXIME
     Dosage: 400 MILLIGRAM, BID
     Route: 048
     Dates: start: 20230206, end: 20230209
  29. MEROPENEM [Concomitant]
     Active Substance: MEROPENEM
     Indication: Urinary tract infection
     Dosage: 1000 MILLIGRAM, TID
     Route: 042
     Dates: start: 20230202, end: 20230207
  30. NALOXONE HYDROCHLORIDE\TILIDINE HYDROCHLORIDE [Concomitant]
     Active Substance: NALOXONE HYDROCHLORIDE\TILIDINE HYDROCHLORIDE
     Indication: Back pain
     Dosage: 15 DROP, PRN
     Route: 048
     Dates: start: 20230207, end: 20230209
  31. NALOXONE HYDROCHLORIDE\TILIDINE HYDROCHLORIDE [Concomitant]
     Active Substance: NALOXONE HYDROCHLORIDE\TILIDINE HYDROCHLORIDE
     Dosage: 50/4 MILLIGRAM, BID
     Route: 048
     Dates: start: 20230207, end: 20230209
  32. LENOGRASTIM [Concomitant]
     Active Substance: LENOGRASTIM
     Indication: Neutropenia
     Dosage: 263 MICROGRAM, PRN
     Route: 058
     Dates: start: 20230207, end: 20230315
  33. PREDNISOLONE [Concomitant]
     Active Substance: PREDNISOLONE
     Indication: Diffuse large B-cell lymphoma
     Dosage: 50 MILLIGRAM, QD
     Route: 048
     Dates: start: 20230106, end: 20230110
  34. AMIODARONE [Concomitant]
     Active Substance: AMIODARONE
     Indication: Atrial fibrillation
     Dosage: UNK
     Dates: start: 202302, end: 202302

REACTIONS (14)
  - Acute kidney injury [Recovered/Resolved]
  - Cytokine release syndrome [Recovered/Resolved]
  - Cytokine release syndrome [Recovered/Resolved]
  - Cytokine release syndrome [Recovered/Resolved]
  - Abdominal pain [Recovered/Resolved]
  - Pyrexia [Recovered/Resolved]
  - Hypotension [Recovered/Resolved]
  - Pyrexia [Recovered/Resolved]
  - Abdominal pain [Recovered/Resolved]
  - Pyrexia [Recovered/Resolved]
  - Hypoxia [Recovered/Resolved]
  - Hypotension [Recovered/Resolved]
  - Tachycardia [Recovered/Resolved]
  - Chills [Recovered/Resolved]

NARRATIVE: CASE EVENT DATE: 20230124
